FAERS Safety Report 7306243-1 (Version None)
Quarter: 2011Q1

REPORT INFORMATION
  Report Type: 
  Country: None (occurrence: None)
  Receive Date: 20110222
  Receipt Date: 20110217
  Transmission Date: 20110831
  Serious: No
  Sender: FDA-Public Use
  Company Number: US-TEVA-267686USA

PATIENT
  Age: 71 Year
  Sex: Male
  Weight: 83.536 kg

DRUGS (11)
  1. RAMIPRIL [Concomitant]
     Indication: CARDIAC DISORDER
  2. ALBUTEROL SULFATE AUTOHALER [Suspect]
     Indication: BRONCHITIS
     Route: 055
     Dates: start: 20100101, end: 20100101
  3. ATORVASTATIN CALCIUM [Concomitant]
     Indication: BLOOD CHOLESTEROL INCREASED
  4. METOPROLOL [Concomitant]
     Indication: CARDIAC DISORDER
  5. AZITHROMYCIN [Suspect]
     Indication: BRONCHITIS
     Dosage: 250 MG 1X/DAY
     Route: 048
     Dates: start: 20100101, end: 20100101
  6. PREDNISONE [Suspect]
     Indication: BRONCHITIS
     Dosage: 20 MG 2X/DAY
     Dates: start: 20100101, end: 20100101
  7. ACETYLSALICYLIC ACID [Concomitant]
     Indication: MYOCARDIAL INFARCTION
  8. CYANOCOBALAMIN [Concomitant]
  9. BENZONATATE [Suspect]
     Indication: BRONCHITIS
     Dosage: 200 MG 1X/DAY
     Dates: start: 20100101, end: 20100101
  10. FISH OIL [Concomitant]
  11. MORNIFLUMATE [Concomitant]
     Indication: MICTURITION DISORDER

REACTIONS (2)
  - URINE ODOUR ABNORMAL [None]
  - ALOPECIA [None]
